FAERS Safety Report 13281983 (Version 1)
Quarter: 2017Q1

REPORT INFORMATION
  Report Type: Spontaneous
  Country: US (occurrence: US)
  Receive Date: 20170301
  Receipt Date: 20170301
  Transmission Date: 20170428
  Serious: No
  Sender: FDA-Public Use
  Company Number: US-FERRINGPH-2016FE06424

PATIENT
  Sex: Male

DRUGS (1)
  1. STIMATE [Suspect]
     Active Substance: DESMOPRESSIN ACETATE
     Indication: FACTOR VIII DEFICIENCY
     Dosage: 2 DF [1 SPRAY EACH NOSTRIL]
     Route: 045
     Dates: start: 20131125

REACTIONS (1)
  - Haemorrhage [Unknown]
